FAERS Safety Report 23369942 (Version 2)
Quarter: 2024Q1

REPORT INFORMATION
  Report Type: Spontaneous
  Country: GB (occurrence: GB)
  Receive Date: 20240105
  Receipt Date: 20240206
  Transmission Date: 20240410
  Serious: No
  Sender: FDA-Public Use
  Company Number: GB-PFIZER INC-PV202300202457

PATIENT

DRUGS (2)
  1. NGENLA [Suspect]
     Active Substance: SOMATROGON-GHLA
     Dosage: UNK
     Route: 058
  2. NGENLA [Suspect]
     Active Substance: SOMATROGON-GHLA
     Dosage: UNK, DAILY

REACTIONS (3)
  - Injection site pain [Unknown]
  - Injection site reaction [Unknown]
  - Device difficult to use [Unknown]
